FAERS Safety Report 8978883 (Version 2)
Quarter: 2013Q1

REPORT INFORMATION
  Report Type: Spontaneous
  Country: GB (occurrence: GB)
  Receive Date: 20121221
  Receipt Date: 20130118
  Transmission Date: 20140127
  Serious: Yes (Other)
  Sender: FDA-Public Use
  Company Number: PHHY2012GB116690

PATIENT
  Age: 62 Year
  Sex: Male

DRUGS (10)
  1. AMIODARONE HYDROCHLORIDE [Suspect]
     Indication: ARRHYTHMIA
     Dosage: 600 MG, TID
     Dates: start: 200711
  2. AMIODARONE HYDROCHLORIDE [Suspect]
     Dosage: 200 MG
     Route: 065
     Dates: end: 20120319
  3. AMIODARONE HYDROCHLORIDE [Suspect]
     Dosage: INITIALLY 600MG THREE TIMES A DAY REDUCED TO 200MG.
     Route: 065
     Dates: start: 200711
  4. BISOPROLOL [Concomitant]
     Dosage: 2.5 MG
  5. BISOPROLOL [Concomitant]
     Dosage: ONGOING TREATMENT
     Route: 065
  6. SIMVASTATIN [Concomitant]
     Dosage: 40 MG
  7. SIMVASTATIN [Concomitant]
     Dosage: ONGOING TREATMENT
     Route: 065
  8. ADCAL-D3 [Concomitant]
     Indication: BONE DISORDER
     Dosage: 2 DF
  9. ADCAL-D3 [Concomitant]
     Dosage: ONGOING TREATMENT
     Route: 065
  10. WARFARIN [Concomitant]

REACTIONS (8)
  - Optic nerve infarction [Not Recovered/Not Resolved]
  - Paraesthesia [Not Recovered/Not Resolved]
  - Glossodynia [Unknown]
  - Blindness [Not Recovered/Not Resolved]
  - Gingival bleeding [Recovered/Resolved]
  - Vision blurred [Not Recovered/Not Resolved]
  - Erythema [Not Recovered/Not Resolved]
  - Drug ineffective [Unknown]
